FAERS Safety Report 23322968 (Version 1)
Quarter: 2023Q4

REPORT INFORMATION
  Report Type: Spontaneous
  Country: US (occurrence: None)
  Receive Date: 20231220
  Receipt Date: 20231220
  Transmission Date: 20240110
  Serious: No
  Sender: FDA-Public Use
  Company Number: US-ROCHE-3236574

PATIENT
  Sex: Female
  Weight: 61.744 kg

DRUGS (4)
  1. RITUXAN [Suspect]
     Active Substance: RITUXIMAB
     Indication: Mucous membrane pemphigoid
     Route: 042
     Dates: start: 20221104
  2. CYMBALTA [Concomitant]
     Active Substance: DULOXETINE HYDROCHLORIDE
     Indication: Depression
  3. WELLBUTRIN [Concomitant]
     Active Substance: BUPROPION HYDROCHLORIDE
     Indication: Depression
  4. DOXYCYCLINE [Concomitant]
     Active Substance: DOXYCYCLINE
     Indication: Blister

REACTIONS (10)
  - Oral mucosal blistering [Unknown]
  - Pyrexia [Unknown]
  - Nasopharyngitis [Unknown]
  - Fatigue [Unknown]
  - Cough [Unknown]
  - Arthralgia [Unknown]
  - Somnolence [Unknown]
  - Lethargy [Unknown]
  - Hypersensitivity [Unknown]
  - Product use in unapproved indication [Unknown]
